FAERS Safety Report 12729074 (Version 2)
Quarter: 2016Q4

REPORT INFORMATION
  Report Type: Report from Study
  Country: CA (occurrence: CA)
  Receive Date: 20160909
  Receipt Date: 20161109
  Transmission Date: 20170207
  Serious: Yes (Hospitalization, Other)
  Sender: FDA-Public Use
  Company Number: CA-TAKEDA-2016TUS012100

PATIENT
  Age: 45 Year
  Sex: Female

DRUGS (8)
  1. TIMOLOL. [Concomitant]
     Active Substance: TIMOLOL
     Dosage: 10 MG, BID
  2. ACETAMINOPHEN. [Concomitant]
     Active Substance: ACETAMINOPHEN
     Indication: PREMEDICATION
     Dosage: 975 MG, UNK
     Dates: start: 20150625
  3. METHYLPREDNISOLONE. [Concomitant]
     Active Substance: METHYLPREDNISOLONE
     Indication: PREMEDICATION
     Dosage: 80 MG, UNK
     Dates: start: 20150625
  4. VEDOLIZUMAB [Suspect]
     Active Substance: VEDOLIZUMAB
     Indication: COLITIS ULCERATIVE
     Dosage: 300 MG, UNK
     Route: 042
     Dates: start: 20150625
  5. CELEBREX [Concomitant]
     Active Substance: CELECOXIB
     Indication: ARTHRALGIA
     Dosage: UNK
  6. DIPHENHYDRAMINE. [Concomitant]
     Active Substance: DIPHENHYDRAMINE
     Indication: PREMEDICATION
     Dosage: 50 MG, UNK
     Dates: start: 20150625
  7. SYNTHROID [Concomitant]
     Active Substance: LEVOTHYROXINE SODIUM
     Dosage: UNK UNK, QD
  8. REMICADE [Concomitant]
     Active Substance: INFLIXIMAB
     Dosage: UNK

REACTIONS (3)
  - Nephrolithiasis [Unknown]
  - Renal colic [Unknown]
  - Blood pressure increased [Unknown]

NARRATIVE: CASE EVENT DATE: 20160705
